FAERS Safety Report 7669643-6 (Version None)
Quarter: 2011Q3

REPORT INFORMATION
  Report Type: 
  Country: None (occurrence: None)
  Receive Date: 20110808
  Receipt Date: 20110802
  Transmission Date: 20111222
  Serious: Yes (Hospitalization)
  Sender: FDA-Public Use
  Company Number: PHHY2011FR65154

PATIENT
  Sex: Male

DRUGS (6)
  1. ESOMEPRAZOLE MAGNESIUM [Concomitant]
  2. BROMAZEPAM [Concomitant]
  3. PARAPSYLLIUM [Concomitant]
  4. TUSSIPAX ORAL SOLUTION [Concomitant]
  5. AFINITOR [Suspect]
     Indication: RENAL CANCER
     Dosage: 10 MG, QD
     Route: 048
     Dates: start: 20110711
  6. LYRICA [Concomitant]
     Dosage: 75 MG, UNK

REACTIONS (5)
  - CHILLS [None]
  - VOMITING [None]
  - PYREXIA [None]
  - OROPHARYNGEAL PAIN [None]
  - COUGH [None]
